FAERS Safety Report 9552504 (Version 1)
Quarter: 2013Q3

REPORT INFORMATION
  Report Type: Spontaneous
  Country: US (occurrence: US)
  Receive Date: 20130925
  Receipt Date: 20130925
  Transmission Date: 20140515
  Serious: No
  Sender: FDA-Public Use
  Company Number: US-PFIZER INC-2013271612

PATIENT
  Age: 62 Year
  Sex: Male

DRUGS (5)
  1. SOLU-MEDROL [Suspect]
     Indication: SINUSITIS
     Dosage: 4 MG, 1X/DAY (1 IN 1 D)
     Dates: start: 20130904
  2. LINZESS [Suspect]
     Indication: CONSTIPATION
     Dosage: 290 UG, 1X/DAY (1 IN 1 D)
     Route: 048
     Dates: start: 20130905
  3. ABILIFY [Concomitant]
     Dosage: UNK
  4. NEXIUM [Concomitant]
     Dosage: UNK
  5. PRISTIQ [Concomitant]
     Dosage: UNK

REACTIONS (1)
  - Diarrhoea [Recovered/Resolved]
